FAERS Safety Report 8138837 (Version 3)
Quarter: 2013Q1

REPORT INFORMATION
  Report Type: Report from Study
  Country: US (occurrence: US)
  Receive Date: 20110915
  Receipt Date: 20130212
  Transmission Date: 20140127
  Serious: Yes (Hospitalization, Other)
  Sender: FDA-Public Use
  Company Number: US-ABBOTT-11P-163-0854393-00

PATIENT
  Sex: Male
  Weight: 113.5 kg

DRUGS (2)
  1. HUMIRA 40 MG/0.8 ML PEN [Suspect]
     Indication: RHEUMATOID ARTHRITIS
  2. MANY MEDICATIONS [Concomitant]
     Indication: HEART RATE IRREGULAR

REACTIONS (5)
  - Nerve compression [Recovering/Resolving]
  - Spinal column stenosis [Unknown]
  - Fall [Unknown]
  - Walking aid user [Not Recovered/Not Resolved]
  - Inappropriate schedule of drug administration [Unknown]
